FAERS Safety Report 6855504-9 (Version None)
Quarter: 2010Q3

REPORT INFORMATION
  Report Type: 
  Country: None (occurrence: None)
  Receive Date: 20100719
  Receipt Date: 20100707
  Transmission Date: 20110219
  Serious: No
  Sender: FDA-Public Use
  Company Number: US-JNJFOC-20100605168

PATIENT
  Sex: Male

DRUGS (10)
  1. SANDOZ FENTANYL TRANSDERMAL SYSTEM [Suspect]
     Indication: BACK PAIN
     Dosage: NDC :0781-7241-55
     Route: 062
  2. SANDOZ FENTANYL TRANSDERMAL SYSTEM [Suspect]
     Route: 062
  3. LISINOPRIL [Concomitant]
     Indication: BLOOD PRESSURE
     Route: 048
  4. TOPROL-XL [Concomitant]
     Indication: BLOOD PRESSURE
     Route: 048
  5. LOPID [Concomitant]
     Indication: BLOOD CHOLESTEROL
     Route: 048
  6. ZOCOR [Concomitant]
     Indication: BLOOD CHOLESTEROL
     Route: 048
  7. PLAVIX [Concomitant]
     Indication: ANTICOAGULANT THERAPY
     Route: 048
  8. IMDUR [Concomitant]
     Indication: CARDIAC DISORDER
     Route: 048
  9. ASPIRIN [Concomitant]
     Indication: ANTICOAGULANT THERAPY
     Route: 048
  10. WARFARIN SODIUM [Concomitant]
     Indication: THROMBOSIS
     Route: 048

REACTIONS (4)
  - DRUG INEFFECTIVE [None]
  - GAIT DISTURBANCE [None]
  - PAIN [None]
  - WRONG TECHNIQUE IN DRUG USAGE PROCESS [None]
